FAERS Safety Report 19613572 (Version 1)
Quarter: 2021Q3

REPORT INFORMATION
  Report Type: Spontaneous
  Country: DE (occurrence: CN)
  Receive Date: 20210727
  Receipt Date: 20210727
  Transmission Date: 20211014
  Serious: Yes (Death, Hospitalization)
  Sender: FDA-Public Use
  Company Number: CN-ELI_LILLY_AND_COMPANY-CN202107010135

PATIENT
  Age: 75 Year
  Sex: Male

DRUGS (6)
  1. ERBITUX [Suspect]
     Active Substance: CETUXIMAB
     Dosage: 500 MG/M2, EVERY TWO WEEKS
     Route: 065
     Dates: start: 20200811
  2. ERBITUX [Suspect]
     Active Substance: CETUXIMAB
     Dosage: 250 MG/M2, WEEKLY (1/W)
     Route: 065
     Dates: start: 201908, end: 20200729
  3. ERBITUX [Suspect]
     Active Substance: CETUXIMAB
     Dosage: UNK, WEEKLY (1/W)
     Route: 065
     Dates: end: 20210106
  4. OXALIPLATIN. [Suspect]
     Active Substance: OXALIPLATIN
     Indication: COLORECTAL CANCER METASTATIC
     Dosage: UNK UNK, UNKNOWN
     Route: 065
     Dates: end: 20201230
  5. CAPECITABINE. [Suspect]
     Active Substance: CAPECITABINE
     Indication: COLORECTAL CANCER METASTATIC
     Dosage: UNK, UNKNOWN
     Route: 065
     Dates: end: 20201230
  6. ERBITUX [Suspect]
     Active Substance: CETUXIMAB
     Indication: COLORECTAL CANCER METASTATIC
     Dosage: 400 MG/M2, UNK
     Route: 065
     Dates: start: 20190812, end: 20190812

REACTIONS (4)
  - Nosocomial infection [Fatal]
  - Acute respiratory distress syndrome [Fatal]
  - Off label use [Unknown]
  - Interstitial lung disease [Fatal]

NARRATIVE: CASE EVENT DATE: 2021
